FAERS Safety Report 21578704 (Version 1)
Quarter: 2022Q4

REPORT INFORMATION
  Report Type: Spontaneous
  Country: US (occurrence: US)
  Receive Date: 20221110
  Receipt Date: 20221110
  Transmission Date: 20230112
  Serious: No
  Sender: FDA-Public Use
  Company Number: US-LUNDBECK-DKLU3053454

PATIENT
  Age: 52 Year
  Sex: Female

DRUGS (3)
  1. NORTHERA [Suspect]
     Active Substance: DROXIDOPA
     Indication: Product used for unknown indication
     Dosage: 3 TO 5 TIMES A DAY DEPENDING ON BLOOD PRESSURE
     Route: 048
     Dates: start: 20191114
  2. NORTHERA [Suspect]
     Active Substance: DROXIDOPA
     Dosage: 3 TO 5 TIMES A DAY DEPENDING ON BLOOD PRESSURE
     Route: 048
     Dates: start: 20191114
  3. HUMULIN R [Concomitant]
     Active Substance: INSULIN HUMAN
     Indication: Product used for unknown indication
     Route: 065

REACTIONS (1)
  - Product dose omission issue [Unknown]
